FAERS Safety Report 9282937 (Version 1)
Quarter: 2013Q2

REPORT INFORMATION
  Report Type: Spontaneous
  Country: JP (occurrence: JP)
  Receive Date: 20130510
  Receipt Date: 20130510
  Transmission Date: 20140414
  Serious: Yes (Hospitalization)
  Sender: FDA-Public Use
  Company Number: JP-EISAI INC-E3810-06424-SPO-JP

PATIENT
  Age: 72 Year
  Sex: Male
  Weight: 50 kg

DRUGS (3)
  1. PARIET (RABEPRAZOLE) [Suspect]
     Indication: GASTRIC ULCER
     Route: 048
     Dates: start: 20130409, end: 20130415
  2. LIPO-OFF [Concomitant]
     Indication: HYPERLIPIDAEMIA
     Route: 048
     Dates: start: 2008
  3. ITOPRIDE [Concomitant]
     Route: 048
     Dates: start: 20130409, end: 20130418

REACTIONS (2)
  - Hyponatraemia [Recovering/Resolving]
  - Hypersomnia [Unknown]
